FAERS Safety Report 16025902 (Version 5)
Quarter: 2024Q4

REPORT INFORMATION
  Report Type: Spontaneous
  Country: AU (occurrence: AU)
  Receive Date: 20190302
  Receipt Date: 20241015
  Transmission Date: 20250115
  Serious: Yes (Other)
  Sender: CELLTRION
  Company Number: AU-CELLTRION INC.-2019AU019051

PATIENT

DRUGS (4)
  1. INFLECTRA [Suspect]
     Active Substance: INFLIXIMAB-DYYB
     Indication: Pancreatic disorder
     Dosage: 10 MG/KG (800 MG), EVERY 8 WEEKS
  2. INFLECTRA [Suspect]
     Active Substance: INFLIXIMAB-DYYB
     Indication: Crohn^s disease
     Dosage: 10 MG/KG (800 MG), EVERY 6 WEEKS
  3. INFLECTRA [Suspect]
     Active Substance: INFLIXIMAB-DYYB
     Dosage: 10 MG/KG, 4 WEEKLY
     Route: 041
  4. THIOGUANINE [Concomitant]
     Active Substance: THIOGUANINE
     Dosage: 20 MG, 2X/DAY, BD
     Dates: start: 201711

REACTIONS (5)
  - Crohn^s disease [Unknown]
  - Condition aggravated [Unknown]
  - Drug level below therapeutic [Unknown]
  - C-reactive protein increased [Unknown]
  - Off label use [Unknown]
